FAERS Safety Report 16834992 (Version 1)
Quarter: 2019Q3

REPORT INFORMATION
  Report Type: Spontaneous
  Country: US (occurrence: US)
  Receive Date: 20190920
  Receipt Date: 20190920
  Transmission Date: 20191005
  Serious: Yes (Death, Other)
  Sender: FDA-Public Use
  Company Number: US-NAPPMUNDI-USA-2019-0148372

PATIENT
  Age: 56 Year
  Sex: Male
  Weight: 104.5 kg

DRUGS (2)
  1. OXYCODONE HYDROCHLORIDE (SIMILAR TO NDA 22-272) [Suspect]
     Active Substance: OXYCODONE HYDROCHLORIDE
     Indication: PRODUCT USED FOR UNKNOWN INDICATION
     Dosage: UNK
     Route: 048
  2. ALCOHOL. [Suspect]
     Active Substance: ALCOHOL
     Indication: PRODUCT USED FOR UNKNOWN INDICATION
     Dosage: UNK
     Route: 048

REACTIONS (2)
  - Death [Fatal]
  - Drug abuse [Unknown]

NARRATIVE: CASE EVENT DATE: 20140517
